FAERS Safety Report 13680092 (Version 1)
Quarter: 2017Q2

REPORT INFORMATION
  Report Type: Spontaneous
  Country: US (occurrence: US)
  Receive Date: 20170622
  Receipt Date: 20170622
  Transmission Date: 20170830
  Serious: Yes (Hospitalization, Other)
  Sender: FDA-Public Use
  Company Number: US-BAUSCH-BL-2017-019602

PATIENT
  Age: 61 Year
  Sex: Female
  Weight: 69.01 kg

DRUGS (2)
  1. XENAZINE [Suspect]
     Active Substance: TETRABENAZINE
     Indication: TARDIVE DYSKINESIA
     Route: 065
     Dates: start: 201311
  2. XENAZINE [Suspect]
     Active Substance: TETRABENAZINE
     Route: 065

REACTIONS (4)
  - Infection [Recovered/Resolved]
  - Catatonia [Unknown]
  - Parkinsonism [Unknown]
  - Off label use [Not Recovered/Not Resolved]

NARRATIVE: CASE EVENT DATE: 201311
